FAERS Safety Report 17954180 (Version 1)
Quarter: 2020Q2

REPORT INFORMATION
  Report Type: Spontaneous
  Country: US (occurrence: US)
  Receive Date: 20200629
  Receipt Date: 20200629
  Transmission Date: 20200714
  Serious: No
  Sender: FDA-Public Use
  Company Number: US-JNJFOC-20200623898

PATIENT
  Age: 64 Year
  Sex: Male
  Weight: 68.55 kg

DRUGS (1)
  1. TYLENOL 8 HR ARTHRITIS PAIN [Suspect]
     Active Substance: ACETAMINOPHEN
     Indication: ARTHRITIS
     Dosage: PRODUCT DOSE OR QUANTITY: 1-2 CAPLETS, PRODUCT USE FREQUENCY: 3-6, PRODUCT LAST ADMINISTRATION DATE
     Route: 048
     Dates: start: 20200531

REACTIONS (2)
  - Incorrect dose administered [Unknown]
  - Inappropriate schedule of product administration [Unknown]

NARRATIVE: CASE EVENT DATE: 20200531
